FAERS Safety Report 11501269 (Version 1)
Quarter: 2015Q3

REPORT INFORMATION
  Report Type: Spontaneous
  Country: DE (occurrence: DE)
  Receive Date: 20150914
  Receipt Date: 20150914
  Transmission Date: 20151125
  Serious: Yes (Death, Other)
  Sender: FDA-Public Use
  Company Number: DE-DEP_12599_2015

PATIENT
  Age: 84 Year
  Sex: Male

DRUGS (6)
  1. TARGIN - NALOXONE HYDROCHLORIDE, OXYCODONE HYDROCHLORIDE [Concomitant]
     Dosage: DF
     Dates: start: 201508, end: 201508
  2. TARGIN - NALOXONE HYDROCHLORIDE, OXYCODONE HYDROCHLORIDE [Concomitant]
     Dosage: DF
     Dates: end: 201508
  3. TORASEMID - TORASEMIDE [Concomitant]
     Dosage: DF
     Dates: end: 201508
  4. PALEXIA [Suspect]
     Active Substance: TAPENTADOL HYDROCHLORIDE
     Indication: PAIN IN EXTREMITY
     Route: 048
     Dates: start: 20150811, end: 20150829
  5. SPIROBETA - SPIRONOLACTONE [Concomitant]
     Dosage: DF
     Dates: end: 201508
  6. PALEXIA [Suspect]
     Active Substance: TAPENTADOL HYDROCHLORIDE
     Indication: PAIN
     Route: 048
     Dates: start: 20150811, end: 20150829

REACTIONS (3)
  - Urinary retention [Not Recovered/Not Resolved]
  - Death [Fatal]
  - Acute kidney injury [Not Recovered/Not Resolved]

NARRATIVE: CASE EVENT DATE: 201508
